FAERS Safety Report 6485011-7 (Version None)
Quarter: 2009Q4

REPORT INFORMATION
  Report Type: 
  Country: None (occurrence: None)
  Receive Date: 20091209
  Receipt Date: 20090609
  Transmission Date: 20100525
  Serious: No
  Sender: FDA-Public Use
  Company Number: US-AMGEN-KDL350925

PATIENT
  Sex: Female
  Weight: 63.6 kg

DRUGS (9)
  1. ENBREL [Suspect]
     Indication: RHEUMATOID ARTHRITIS
  2. HUMIRA [Suspect]
     Route: 058
     Dates: start: 20080801
  3. ALENDRONATE SODIUM [Concomitant]
     Route: 048
  4. OMEPRAZOLE SODIUM [Concomitant]
     Route: 048
  5. CELEBREX [Concomitant]
  6. METHOTREXATE [Concomitant]
     Route: 048
  7. FOLIC ACID [Concomitant]
  8. PREDNISONE [Concomitant]
     Route: 048
  9. OSCAL [Concomitant]
     Route: 048

REACTIONS (2)
  - POOR QUALITY DRUG ADMINISTERED [None]
  - RASH [None]
